FAERS Safety Report 21486143 (Version 22)
Quarter: 2024Q4

REPORT INFORMATION
  Report Type: Spontaneous
  Country: US (occurrence: US)
  Receive Date: 20221020
  Receipt Date: 20241114
  Transmission Date: 20250115
  Serious: Yes (Other)
  Sender: PFIZER
  Company Number: US-PFIZER INC-PV202200085421

PATIENT
  Age: 77 Year
  Sex: Female

DRUGS (2)
  1. PREMARIN [Suspect]
     Active Substance: ESTROGENS, CONJUGATED
     Dosage: THEY GIVE ME A HIGHER DOSE TO USE WITH THE LOWER DOSE WITH THE CREAM
  2. PREMARIN [Suspect]
     Active Substance: ESTROGENS, CONJUGATED
     Dosage: 1 DF, 1X/DAY (I TAKE A VERY LOW DOSE PREMARIN PILL AT NIGHT)

REACTIONS (2)
  - Joint injury [Unknown]
  - Wrong strength [Unknown]
